FAERS Safety Report 7478666-1 (Version None)
Quarter: 2011Q2

REPORT INFORMATION
  Report Type: 
  Country: None (occurrence: None)
  Receive Date: 20110511
  Receipt Date: 20110511
  Transmission Date: 20111010
  Serious: Yes (Hospitalization)
  Sender: FDA-Public Use
  Company Number: None

PATIENT
  Age: 9 Month
  Sex: Male
  Weight: 7 kg

DRUGS (1)
  1. CISATRACURIUM BESYLATE [Suspect]
     Indication: ENDOTRACHEAL INTUBATION
     Dosage: 0.2 MG/KG/HOUR IV DRIP
     Route: 041

REACTIONS (2)
  - PRODUCT MEASURED POTENCY ISSUE [None]
  - DRUG RESISTANCE [None]
